FAERS Safety Report 5423707-6 (Version None)
Quarter: 2007Q3

REPORT INFORMATION
  Report Type: 
  Country: None (occurrence: None)
  Receive Date: 20070725
  Receipt Date: 20070222
  Transmission Date: 20080115
  Serious: Yes (Other)
  Sender: FDA-Public Use
  Company Number: US200702004713

PATIENT
  Age: 10 Year
  Sex: Male
  Weight: 34 kg

DRUGS (3)
  1. STRATTERA [Suspect]
     Indication: ATTENTION DEFICIT/HYPERACTIVITY DISORDER
     Dosage: 40 MG, DAILY (1/D),
     Dates: start: 20040101
  2. PERIACTIN [Concomitant]
  3. ZYRTEC [Concomitant]

REACTIONS (4)
  - CONDUCT DISORDER [None]
  - HALLUCINATION [None]
  - MEMORY IMPAIRMENT [None]
  - URINARY TRACT INFECTION [None]
